FAERS Safety Report 12211108 (Version 1)
Quarter: 2016Q1

REPORT INFORMATION
  Report Type: Spontaneous
  Country: FR (occurrence: FR)
  Receive Date: 20160325
  Receipt Date: 20160325
  Transmission Date: 20160526
  Serious: Yes (Other)
  Sender: FDA-Public Use
  Company Number: FR-PFIZER INC-2016168107

PATIENT
  Age: 62 Year
  Sex: Male

DRUGS (5)
  1. LANTUS [Concomitant]
     Active Substance: INSULIN GLARGINE
  2. FRAGMINE [Suspect]
     Active Substance: DALTEPARIN SODIUM
     Dosage: UNK
     Route: 058
     Dates: start: 20160117, end: 20160122
  3. HUMALOG [Concomitant]
     Active Substance: INSULIN LISPRO
  4. IPERTEN [Concomitant]
     Active Substance: MANIDIPINE
  5. COVERSYL /00790703/ [Concomitant]
     Active Substance: PERINDOPRIL

REACTIONS (2)
  - Thrombophlebitis superficial [Recovered/Resolved]
  - Thrombocytopenia [Recovered/Resolved]

NARRATIVE: CASE EVENT DATE: 20160122
